FAERS Safety Report 20429665 (Version 1)
Quarter: 2022Q1

REPORT INFORMATION
  Report Type: Report from Study
  Country: FR (occurrence: FR)
  Receive Date: 20220204
  Receipt Date: 20220204
  Transmission Date: 20220424
  Serious: Yes (Life-Threatening, Hospitalization)
  Sender: FDA-Public Use
  Company Number: FR-SERVIER-S19009030

PATIENT

DRUGS (11)
  1. ONCASPAR [Suspect]
     Active Substance: PEGASPARGASE
     Indication: Acute lymphocytic leukaemia
     Dosage: 3450 IU, ON D4, D43
     Route: 042
     Dates: start: 20190617, end: 20190730
  2. VINCRISTINE [Suspect]
     Active Substance: VINCRISTINE
     Indication: Acute lymphocytic leukaemia
     Dosage: 2 MG, ON D1, D8, D15, D43
     Route: 042
     Dates: start: 20190613, end: 20190730
  3. ADRIAMYCIN [Suspect]
     Active Substance: DOXORUBICIN HYDROCHLORIDE
     Indication: Acute lymphocytic leukaemia
     Dosage: 33 MG, ON D1, D8, D15
     Route: 042
     Dates: start: 20190613, end: 20190627
  4. THIOGUANINE [Suspect]
     Active Substance: THIOGUANINE
     Indication: Acute lymphocytic leukaemia
     Dosage: 80 MG QD FROM D29 TO D42
     Route: 048
     Dates: start: 20190718, end: 20190729
  5. CYTARABINE [Suspect]
     Active Substance: CYTARABINE
     Indication: Acute lymphocytic leukaemia
     Dosage: 30 MG, ON D4, D31
     Route: 037
     Dates: start: 20190617, end: 20190718
  6. CYTARABINE [Suspect]
     Active Substance: CYTARABINE
     Dosage: 100 MG QD FROM D31 TO D34 AND FROM D38 TO D41
     Route: 042
     Dates: start: 20190718, end: 20190728
  7. CYCLOPHOSPHAMIDE [Suspect]
     Active Substance: CYCLOPHOSPHAMIDE
     Indication: Acute lymphocytic leukaemia
     Dosage: 1380 MG, ONE DOSE ON DAY 29
     Route: 042
     Dates: start: 20190716, end: 20190716
  8. TN UNSPECIFIED [Concomitant]
     Indication: Acute lymphocytic leukaemia
     Dosage: 13.5 MG QD, FROM D1 TO D7 AND FROM D15 TO D21
     Route: 048
     Dates: start: 20190613, end: 20190703
  9. TN UNSPECIFIED [Concomitant]
     Indication: Acute lymphocytic leukaemia
     Dosage: 15 MG, ON D4, D31
     Route: 037
     Dates: start: 20190617, end: 20190718
  10. TN UNSPECIFIED [Concomitant]
     Indication: Acute lymphocytic leukaemia
     Dosage: 15 MG, ON D4, D31
     Route: 037
     Dates: start: 20190617, end: 20190718
  11. TN UNSPECIFIED [Concomitant]
     Indication: Product used for unknown indication
     Dosage: 400 MG
     Route: 048
     Dates: start: 20190618

REACTIONS (1)
  - Venoocclusive liver disease [Recovered/Resolved]

NARRATIVE: CASE EVENT DATE: 20190802
